FAERS Safety Report 23570028 (Version 1)
Quarter: 2024Q1

REPORT INFORMATION
  Report Type: Spontaneous
  Country: US (occurrence: None)
  Receive Date: 20240226
  Receipt Date: 20240226
  Transmission Date: 20240409
  Serious: Yes (Hospitalization, Disabling, Other)
  Sender: FDA-Public Use
  Company Number: None

PATIENT
  Age: 38 Year
  Sex: Female
  Weight: 94.5 kg

DRUGS (1)
  1. FLUOXETINE HYDROCHLORIDE [Suspect]
     Active Substance: FLUOXETINE HYDROCHLORIDE
     Indication: Anxiety
     Dosage: OTHER QUANTITY : 1 TABLET(S);?
     Route: 048
     Dates: start: 20210228, end: 20221010

REACTIONS (61)
  - Withdrawal syndrome [None]
  - Panic attack [None]
  - Decreased appetite [None]
  - Hypophagia [None]
  - Quality of life decreased [None]
  - Bedridden [None]
  - Alopecia [None]
  - Polymenorrhoea [None]
  - Anxiety [None]
  - Depression [None]
  - Tachycardia [None]
  - Hyperhidrosis [None]
  - Dizziness [None]
  - Tremor [None]
  - Food allergy [None]
  - Poor quality sleep [None]
  - Allergy to chemicals [None]
  - Caffeine allergy [None]
  - Asthenia [None]
  - Exercise tolerance decreased [None]
  - Dyspnoea [None]
  - Flatulence [None]
  - Bladder spasm [None]
  - Ocular hyperaemia [None]
  - Blood glucose abnormal [None]
  - Peripheral coldness [None]
  - Constipation [None]
  - Dry mouth [None]
  - Ear discomfort [None]
  - Vitreous floaters [None]
  - Dysgeusia [None]
  - Abdominal distension [None]
  - Hot flush [None]
  - Feeling hot [None]
  - Hyperacusis [None]
  - Salivary hypersecretion [None]
  - Myoclonus [None]
  - Bowel movement irregularity [None]
  - Vibration syndrome [None]
  - Insomnia [None]
  - Intrusive thoughts [None]
  - Eye irritation [None]
  - Pruritus [None]
  - Enuresis [None]
  - Libido disorder [None]
  - Joint lock [None]
  - Unevaluable event [None]
  - Dysgeusia [None]
  - Muscle twitching [None]
  - Muscle tightness [None]
  - Neck pain [None]
  - Night sweats [None]
  - Panic disorder [None]
  - Persistent genital arousal disorder [None]
  - Memory impairment [None]
  - Acne [None]
  - Tremor [None]
  - Tremor [None]
  - Dyspnoea [None]
  - Starvation [None]
  - Lacrimation increased [None]

NARRATIVE: CASE EVENT DATE: 20230110
